FAERS Safety Report 7777819-2 (Version None)
Quarter: 2011Q3

REPORT INFORMATION
  Report Type: 
  Country: None (occurrence: None)
  Receive Date: 20110926
  Receipt Date: 20110915
  Transmission Date: 20111222
  Serious: No
  Sender: FDA-Public Use
  Company Number: US-BIOGENIDEC-2011BI031450

PATIENT
  Sex: Male

DRUGS (2)
  1. TYSABRI [Suspect]
     Indication: MULTIPLE SCLEROSIS
     Route: 042
     Dates: start: 20071227, end: 20101025
  2. TYSABRI [Suspect]
     Route: 042
     Dates: start: 20110826

REACTIONS (5)
  - HEADACHE [None]
  - DRUG DEPENDENCE [None]
  - CENTRAL NERVOUS SYSTEM LESION [None]
  - PAIN IN EXTREMITY [None]
  - DEPRESSION [None]
